FAERS Safety Report 22648314 (Version 1)
Quarter: 2023Q2

REPORT INFORMATION
  Report Type: Spontaneous
  Country: CA (occurrence: CA)
  Receive Date: 20230628
  Receipt Date: 20230628
  Transmission Date: 20230722
  Serious: Yes (Other)
  Sender: FDA-Public Use
  Company Number: CA-BRISTOL-MYERS SQUIBB COMPANY-2023-090267

PATIENT
  Age: 63 Year
  Sex: Female

DRUGS (3)
  1. NIVOLUMAB [Suspect]
     Active Substance: NIVOLUMAB
     Indication: Metastatic malignant melanoma
     Dosage: DOSE : UNAV;     FREQ : UNAV
     Dates: start: 2017
  2. NIVOLUMAB [Suspect]
     Active Substance: NIVOLUMAB
     Dosage: SINGLE AGENT
     Dates: start: 201711
  3. IPILIMUMAB [Suspect]
     Active Substance: IPILIMUMAB
     Indication: Metastatic malignant melanoma
     Dates: start: 2017

REACTIONS (3)
  - Uveitis [Unknown]
  - Cystoid macular oedema [Unknown]
  - Hypotony of eye [Unknown]
